FAERS Safety Report 7487099-3 (Version None)
Quarter: 2011Q2

REPORT INFORMATION
  Report Type: 
  Country: None (occurrence: None)
  Receive Date: 20110509
  Receipt Date: 20110426
  Transmission Date: 20111010
  Serious: Yes (Hospitalization)
  Sender: FDA-Public Use
  Company Number: B0717060A

PATIENT
  Sex: Male

DRUGS (13)
  1. CLONAZEPAM [Concomitant]
  2. ERYTHROMYCIN [Concomitant]
  3. PHENYTOIN [Concomitant]
  4. CEFOTAXIME [Concomitant]
  5. GENTAMICIN SULFATE [Concomitant]
  6. CLOBAZAM (FORMULATION UNKNOWN) (CLOBAZAM) [Suspect]
  7. PARALDEHYDE [Concomitant]
  8. THIOPENTAL SODIUM [Concomitant]
  9. LAMOTRIGINE [Suspect]
     Indication: EPILEPSY
  10. ANTIBIOTICS [Concomitant]
  11. DIAZEPAM [Concomitant]
  12. PIPERACILLIN [Concomitant]
  13. VALPROATE SODIUM [Suspect]

REACTIONS (16)
  - HYPOTONIA [None]
  - MOVEMENT DISORDER [None]
  - DEVELOPMENTAL DELAY [None]
  - STATUS EPILEPTICUS [None]
  - ISCHAEMIA [None]
  - DYSTONIA [None]
  - LEARNING DISORDER [None]
  - ENCEPHALOPATHY [None]
  - BRAIN OEDEMA [None]
  - PYREXIA [None]
  - HYPOXIA [None]
  - CEREBRAL ATROPHY [None]
  - AKINESIA [None]
  - PNEUMONIA MYCOPLASMAL [None]
  - MUSCLE SPASMS [None]
  - APHASIA [None]
